FAERS Safety Report 8188738-4 (Version None)
Quarter: 2012Q1

REPORT INFORMATION
  Report Type: 
  Country: None (occurrence: None)
  Receive Date: 20120306
  Receipt Date: 20120227
  Transmission Date: 20120608
  Serious: Yes (Other)
  Sender: FDA-Public Use
  Company Number: PHHY2012US016328

PATIENT
  Age: 70 Year
  Sex: Male

DRUGS (3)
  1. ELEPURINAL [Concomitant]
  2. WATER PILLS [Concomitant]
  3. BUFFERIN [Suspect]
     Indication: ARTHRALGIA
     Dosage: 2 OR MORE EVERY 4 TO 6 HRS
     Route: 048

REACTIONS (7)
  - GOUT [None]
  - INCORRECT DRUG ADMINISTRATION RATE [None]
  - JAUNDICE [None]
  - WEIGHT DECREASED [None]
  - DIARRHOEA [None]
  - INCORRECT DRUG ADMINISTRATION DURATION [None]
  - CARDIOMYOPATHY [None]
